FAERS Safety Report 14184882 (Version 7)
Quarter: 2018Q3

REPORT INFORMATION
  Report Type: Spontaneous
  Country: US (occurrence: US)
  Receive Date: 20171113
  Receipt Date: 20180713
  Transmission Date: 20181010
  Serious: No
  Sender: FDA-Public Use
  Company Number: US-ACTELION-A-NJ2017-162507

PATIENT
  Age: 77 Year
  Sex: Female
  Weight: 81.63 kg

DRUGS (2)
  1. AMLODIPINE [Concomitant]
     Active Substance: AMLODIPINE BESYLATE
  2. OPSUMIT [Suspect]
     Active Substance: MACITENTAN
     Indication: PULMONARY ARTERIAL HYPERTENSION
     Dosage: 10 MG, QD
     Route: 048

REACTIONS (12)
  - Respiratory tract infection [Unknown]
  - Back pain [Unknown]
  - Musculoskeletal pain [Unknown]
  - Breast disorder [Unknown]
  - Nasopharyngitis [Unknown]
  - Breast cyst [Unknown]
  - Dry mouth [Unknown]
  - Arthralgia [Unknown]
  - Atrial fibrillation [Unknown]
  - Sciatica [Unknown]
  - Cough [Unknown]
  - Fatigue [Unknown]
